FAERS Safety Report 9281730 (Version 2)
Quarter: 2013Q2

REPORT INFORMATION
  Report Type: Spontaneous
  Country: US (occurrence: US)
  Receive Date: 20130510
  Receipt Date: 20130627
  Transmission Date: 20140414
  Serious: Yes (Death, Hospitalization)
  Sender: FDA-Public Use
  Company Number: US-B.I. PHARMACEUTICALS,INC./RIDGEFIELD-2013-BI-13023BP

PATIENT
  Age: 77 Year
  Sex: Male
  Weight: 72.57 kg

DRUGS (9)
  1. PRADAXA [Suspect]
     Indication: ANTICOAGULANT THERAPY
     Dosage: 300 MG
     Route: 048
     Dates: start: 20110517, end: 20120216
  2. GABAPENTIN [Concomitant]
     Dosage: 600 MG
     Route: 048
  3. SOTALOL [Concomitant]
     Dosage: 40 MG
     Route: 048
  4. NAMENDA [Concomitant]
     Dosage: 20 MG
     Route: 048
  5. ESCITALOPRAM [Concomitant]
     Dosage: 10 MG
     Route: 048
  6. CITRACAL+D [Concomitant]
     Route: 048
  7. SEROQUEL [Concomitant]
     Dosage: 75 MG
     Route: 048
  8. SEROQUEL [Concomitant]
     Dosage: 50 MG
     Route: 048
  9. ATENOLOL [Concomitant]
     Dosage: 25 MG
     Route: 048

REACTIONS (1)
  - Lower gastrointestinal haemorrhage [Fatal]
